FAERS Safety Report 12302418 (Version 1)
Quarter: 2016Q2

REPORT INFORMATION
  Report Type: Spontaneous
  Country: US (occurrence: US)
  Receive Date: 20160425
  Receipt Date: 20160425
  Transmission Date: 20160815
  Serious: Yes (Other)
  Sender: FDA-Public Use
  Company Number: US-PFIZER INC-2016227624

PATIENT
  Age: 30 Year
  Sex: Male
  Weight: 84 kg

DRUGS (2)
  1. VIAGRA [Suspect]
     Active Substance: SILDENAFIL CITRATE
     Indication: ERECTILE DYSFUNCTION
     Dosage: 100 MG
     Route: 048
  2. MELOXICAM. [Suspect]
     Active Substance: MELOXICAM
     Dosage: UNK

REACTIONS (3)
  - Anorgasmia [Not Recovered/Not Resolved]
  - Vein discolouration [Not Recovered/Not Resolved]
  - Erection increased [Unknown]
